FAERS Safety Report 22066655 (Version 1)
Quarter: 2023Q1

REPORT INFORMATION
  Report Type: Report from Study
  Country: US (occurrence: US)
  Receive Date: 20230306
  Receipt Date: 20230306
  Transmission Date: 20230418
  Serious: Yes (Death)
  Sender: FDA-Public Use
  Company Number: US-ARGENX-2022-ARGX-US001593

PATIENT

DRUGS (2)
  1. EFGARTIGIMOD ALFA-FCAB [Suspect]
     Active Substance: EFGARTIGIMOD ALFA-FCAB
     Indication: Myasthenia gravis
     Dosage: UNK, 1/WEEK
     Route: 042
     Dates: start: 20220722
  2. EFGARTIGIMOD ALFA-FCAB [Suspect]
     Active Substance: EFGARTIGIMOD ALFA-FCAB
     Dosage: UNK
     Dates: start: 20220819

REACTIONS (11)
  - Death [Fatal]
  - Breast swelling [Unknown]
  - Swelling [Unknown]
  - Cough [Unknown]
  - Positive airway pressure therapy [Unknown]
  - Skin papilloma [Not Recovered/Not Resolved]
  - Dysuria [Unknown]
  - Pollakiuria [Unknown]
  - Weight increased [Unknown]
  - Peripheral swelling [Unknown]
  - Cystitis [Unknown]
